FAERS Safety Report 12999609 (Version 5)
Quarter: 2020Q1

REPORT INFORMATION
  Report Type: Spontaneous
  Country: US (occurrence: US)
  Receive Date: 20161205
  Receipt Date: 20200213
  Transmission Date: 20200409
  Serious: No
  Sender: FDA-Public Use
  Company Number: US-PFIZER INC-2016557193

PATIENT
  Age: 72 Year
  Sex: Male
  Weight: 90.7 kg

DRUGS (2)
  1. XELJANZ [Suspect]
     Active Substance: TOFACITINIB CITRATE
     Indication: CHRONIC ACTINIC DERMATITIS
     Dosage: 5 MG, UNK
     Dates: start: 2016, end: 2016
  2. XELJANZ [Suspect]
     Active Substance: TOFACITINIB CITRATE
     Indication: DERMATITIS ATOPIC
     Dosage: 5 MG, ONCE OR TWICE DAILY
     Route: 048
     Dates: start: 201710, end: 201712

REACTIONS (3)
  - Off label use [Unknown]
  - Pruritus [Unknown]
  - Drug ineffective for unapproved indication [Recovered/Resolved]
